FAERS Safety Report 10488433 (Version 1)
Quarter: 2014Q4

REPORT INFORMATION
  Report Type: Spontaneous
  Country: US (occurrence: None)
  Receive Date: 20141001
  Receipt Date: 20141001
  Transmission Date: 20150528
  Serious: Yes (Other)
  Sender: FDA-Public Use
  Company Number: None

PATIENT
  Age: 65 Year
  Sex: Female

DRUGS (2)
  1. INTRON A [Suspect]
     Active Substance: INTERFERON ALFA-2B
     Indication: SYSTEMIC MASTOCYTOSIS
     Dosage: 3 MILLION UNITS THREE TIMES WEEKLY SUBCUTANEOUS
     Route: 058
     Dates: start: 20140311, end: 20140915
  2. INTRON A [Suspect]
     Active Substance: INTERFERON ALFA-2B
     Indication: LEUKAEMIA
     Dosage: 3 MILLION UNITS THREE TIMES WEEKLY SUBCUTANEOUS
     Route: 058
     Dates: start: 20140311, end: 20140915

REACTIONS (3)
  - Haemoglobin decreased [None]
  - Platelet count decreased [None]
  - Drug ineffective [None]

NARRATIVE: CASE EVENT DATE: 20140916
